FAERS Safety Report 25303401 (Version 2)
Quarter: 2025Q2

REPORT INFORMATION
  Report Type: Report from Study
  Country: US (occurrence: US)
  Receive Date: 20250512
  Receipt Date: 20250527
  Transmission Date: 20250716
  Serious: Yes (Other)
  Sender: MALLINCKRODT
  Company Number: US-MALLINCKRODT-MNK202502804

PATIENT
  Age: 50 Year
  Sex: Female
  Weight: 180 kg

DRUGS (1)
  1. CORTICOTROPIN [Suspect]
     Active Substance: CORTICOTROPIN
     Indication: Iridocyclitis
     Route: 058
     Dates: start: 20250426

REACTIONS (6)
  - Uterine leiomyoma [Unknown]
  - Oral discomfort [Recovered/Resolved]
  - Ageusia [Recovered/Resolved]
  - Feeling abnormal [Recovered/Resolved]
  - Weight increased [Unknown]
  - Hypersensitivity [Unknown]

NARRATIVE: CASE EVENT DATE: 20250101
